FAERS Safety Report 7675624-9 (Version None)
Quarter: 2011Q3

REPORT INFORMATION
  Report Type: 
  Country: None (occurrence: None)
  Receive Date: 20110810
  Receipt Date: 20110804
  Transmission Date: 20111222
  Serious: Yes (Death, Hospitalization)
  Sender: FDA-Public Use
  Company Number: US-CELGENEUS-163-21880-11080928

PATIENT
  Age: 85 Year
  Sex: Male
  Weight: 51.756 kg

DRUGS (1)
  1. REVLIMID [Suspect]
     Indication: MULTIPLE MYELOMA
     Dosage: 10 MILLIGRAM
     Route: 048
     Dates: start: 20100910, end: 20110607

REACTIONS (5)
  - MULTIPLE MYELOMA [None]
  - ABDOMINAL PAIN [None]
  - WEIGHT DECREASED [None]
  - DEATH [None]
  - VOMITING [None]
